FAERS Safety Report 18024818 (Version 1)
Quarter: 2020Q3

REPORT INFORMATION
  Report Type: Spontaneous
  Country: US (occurrence: US)
  Receive Date: 20200715
  Receipt Date: 20200715
  Transmission Date: 20201103
  Serious: Yes (Hospitalization)
  Sender: FDA-Public Use
  Company Number: None

PATIENT
  Age: 28 Year
  Sex: Male

DRUGS (4)
  1. HYDROXY PAM 25MG [Concomitant]
  2. PROMACTA [Suspect]
     Active Substance: ELTROMBOPAG OLAMINE
     Indication: ANAEMIA
     Route: 048
     Dates: start: 20200325
  3. CALCITRIOL 0.25MCG [Concomitant]
  4. SEVELAMER 800MG [Concomitant]
     Active Substance: SEVELAMER

REACTIONS (1)
  - Hospitalisation [None]

NARRATIVE: CASE EVENT DATE: 20200627
